FAERS Safety Report 8003869-7 (Version None)
Quarter: 2011Q4

REPORT INFORMATION
  Report Type: 
  Country: None (occurrence: None)
  Receive Date: 20111222
  Receipt Date: 20111214
  Transmission Date: 20120403
  Serious: Yes (Death, Other)
  Sender: FDA-Public Use
  Company Number: AU-MILLENNIUM PHARMACEUTICALS, INC.-2011-06457

PATIENT

DRUGS (1)
  1. VELCADE [Suspect]
     Indication: MULTIPLE MYELOMA

REACTIONS (3)
  - SOFT TISSUE MASS [None]
  - DEATH [None]
  - MYELOMA RECURRENCE [None]
